FAERS Safety Report 10935841 (Version 1)
Quarter: 2015Q1

REPORT INFORMATION
  Report Type: Spontaneous
  Country: US (occurrence: US)
  Receive Date: 20150320
  Receipt Date: 20150320
  Transmission Date: 20150721
  Serious: No
  Sender: FDA-Public Use
  Company Number: US-ASTRAZENECA-2015SE23448

PATIENT
  Sex: Female

DRUGS (4)
  1. JUXTAPID [Concomitant]
     Active Substance: LOMITAPIDE MESYLATE
  2. ZETIA [Concomitant]
     Active Substance: EZETIMIBE
  3. FENOFIBRATE. [Concomitant]
     Active Substance: FENOFIBRATE
  4. CRESTOR [Suspect]
     Active Substance: ROSUVASTATIN CALCIUM
     Indication: TYPE IIA HYPERLIPIDAEMIA
     Route: 048
     Dates: start: 2013, end: 2014

REACTIONS (2)
  - Myalgia [Unknown]
  - Therapeutic response changed [Unknown]
